FAERS Safety Report 16484964 (Version 2)
Quarter: 2019Q2

REPORT INFORMATION
  Report Type: Spontaneous
  Country: US (occurrence: US)
  Receive Date: 20190627
  Receipt Date: 20190627
  Transmission Date: 20190711
  Serious: No
  Sender: FDA-Public Use
  Company Number: US-GALDERMA-US18044661

PATIENT
  Age: 48 Year
  Sex: Female

DRUGS (15)
  1. METFORMIN [Concomitant]
     Active Substance: METFORMIN HYDROCHLORIDE
  2. PROACTIV MD ADAPALENE ACNE TREATMENT [Suspect]
     Active Substance: ADAPALENE
     Indication: ACNE
     Dosage: 0.1%
     Route: 061
     Dates: start: 20180913
  3. METFORMIN [Concomitant]
     Active Substance: METFORMIN HYDROCHLORIDE
     Indication: DIABETES MELLITUS
  4. VITAMIN B3 [Concomitant]
     Active Substance: NIACIN
  5. PROACTIV MD DAILY OIL CONTROL SPF 30 [Suspect]
     Active Substance: AVOBENZONE\OCTISALATE\OCTOCRYLENE
     Indication: ACNE
     Route: 061
     Dates: start: 20180913
  6. PROTONIX [Concomitant]
     Active Substance: PANTOPRAZOLE SODIUM
     Indication: GASTROOESOPHAGEAL REFLUX DISEASE
  7. PROACTIV GREEN TEA MOISTURIZER [Concomitant]
     Active Substance: COSMETICS
     Indication: ACNE
     Route: 061
     Dates: start: 20180913
  8. PROACTIV MD DEEP CLEANSING FACE WASH [Concomitant]
     Active Substance: COSMETICS
     Indication: ACNE
     Route: 061
     Dates: start: 20180913
  9. LYRICA [Concomitant]
     Active Substance: PREGABALIN
     Indication: ARTHRITIS
  10. SINSTATIN [Concomitant]
  11. INSULIN [Concomitant]
     Active Substance: INSULIN NOS
  12. MELOXICAM. [Concomitant]
     Active Substance: MELOXICAM
     Indication: PAIN
  13. LIDOCAINE. [Concomitant]
     Active Substance: LIDOCAINE
  14. CLARITINE [Concomitant]
     Active Substance: LORATADINE
  15. CYCLOBENZAPR [Concomitant]
     Active Substance: CYCLOBENZAPRINE
     Indication: MUSCLE SPASMS

REACTIONS (5)
  - Dry skin [Recovered/Resolved]
  - Erythema [Recovered/Resolved]
  - Inappropriate schedule of product administration [Recovered/Resolved]
  - Underdose [Recovered/Resolved]
  - Pain of skin [Recovered/Resolved]

NARRATIVE: CASE EVENT DATE: 20180918
